FAERS Safety Report 10304785 (Version 1)
Quarter: 2014Q3

REPORT INFORMATION
  Report Type: Spontaneous
  Country: GB (occurrence: None)
  Receive Date: 20140710
  Receipt Date: 20140710
  Transmission Date: 20150326
  Serious: Yes (Other)
  Sender: FDA-Public Use
  Company Number: AUR-APL-2014-07201

PATIENT
  Age: 88 Year
  Sex: Female

DRUGS (7)
  1. METOCLOPRAMIDE (METOCLOPRAMIDE) [Suspect]
     Active Substance: METOCLOPRAMIDE
     Indication: VOMITING
  2. ONDANSETRON. [Suspect]
     Active Substance: ONDANSETRON
     Indication: VOMITING
     Route: 048
  3. LEVOMEPROMAZINE [Suspect]
     Active Substance: LEVOMEPROMAZINE
     Indication: VOMITING
     Route: 058
  4. CYCLIZINE [Suspect]
     Active Substance: CYCLIZINE
     Indication: VOMITING
  5. DOMPERIDONE (DOMPERIDONE) [Suspect]
     Active Substance: DOMPERIDONE
     Indication: VOMITING
  6. GRANISETRON (GRANISETRON) [Suspect]
     Active Substance: GRANISETRON
     Indication: VOMITING
     Route: 058
  7. PREDNISOLONE (PREDNISOLONE) [Suspect]
     Active Substance: PREDNISOLONE
     Indication: VOMITING

REACTIONS (3)
  - Vomiting [None]
  - Condition aggravated [None]
  - Drug ineffective [None]
